FAERS Safety Report 12959829 (Version 2)
Quarter: 2017Q1

REPORT INFORMATION
  Report Type: Spontaneous
  Country: US (occurrence: US)
  Receive Date: 20161121
  Receipt Date: 20170223
  Transmission Date: 20170428
  Serious: Yes (Other)
  Sender: FDA-Public Use
  Company Number: US-GLAXOSMITHKLINE-US2016171138

PATIENT
  Sex: Female

DRUGS (3)
  1. ADVAIR HFA [Suspect]
     Active Substance: FLUTICASONE PROPIONATE\SALMETEROL XINAFOATE
     Dosage: 1 PUFF(S), BID
     Route: 055
  2. ADVAIR DISKUS [Suspect]
     Active Substance: FLUTICASONE PROPIONATE\SALMETEROL XINAFOATE
     Indication: PRODUCT USED FOR UNKNOWN INDICATION
     Dosage: 1 PUFF(S), UNK
     Route: 055
  3. ADVAIR HFA [Suspect]
     Active Substance: FLUTICASONE PROPIONATE\SALMETEROL XINAFOATE
     Indication: PRODUCT USED FOR UNKNOWN INDICATION
     Dosage: 2 PUFF(S), BID
     Route: 055

REACTIONS (10)
  - Stress [Unknown]
  - Diaphragmatic hernia [Unknown]
  - Myocardial infarction [Unknown]
  - Anxiety [Unknown]
  - Cough [Unknown]
  - Dyspnoea [Unknown]
  - Coronary artery bypass [Unknown]
  - Drug hypersensitivity [Unknown]
  - Breath sounds abnormal [Unknown]
  - Intentional underdose [Unknown]
